FAERS Safety Report 15037211 (Version 2)
Quarter: 2018Q2

REPORT INFORMATION
  Report Type: Spontaneous
  Country: JP (occurrence: JP)
  Receive Date: 20180620
  Receipt Date: 20180629
  Transmission Date: 20180711
  Serious: Yes (Hospitalization, Other)
  Sender: FDA-Public Use
  Company Number: JP-PFIZER INC-2018245792

PATIENT
  Age: 50 Year
  Sex: Female

DRUGS (5)
  1. PACLITAXEL. [Suspect]
     Active Substance: PACLITAXEL
     Indication: INVASIVE PAPILLARY BREAST CARCINOMA
     Dosage: 80 MG/M2, EVERY WEEK (12CYCLES)
  2. CYCLOPHOSPHAMIDE. [Suspect]
     Active Substance: CYCLOPHOSPHAMIDE
     Indication: INVASIVE BREAST CARCINOMA
     Dosage: 600 MG/M2, EVERY 3 WEEKS (4 CYCLES)
  3. ADRIACIN [Suspect]
     Active Substance: DOXORUBICIN HYDROCHLORIDE
     Indication: INVASIVE PAPILLARY BREAST CARCINOMA
     Dosage: 60 MG/M2, CYCLIC (4 CYCLES)
  4. LANSOPRAZOLE. [Concomitant]
     Active Substance: LANSOPRAZOLE
     Dosage: 15 MG, 2X/DAY
  5. LANSOPRAZOLE. [Concomitant]
     Active Substance: LANSOPRAZOLE
     Dosage: 30 MG, 2X/DAY
     Route: 041

REACTIONS (1)
  - Radiation oesophagitis [Recovered/Resolved]
